FAERS Safety Report 4712875-7 (Version None)
Quarter: 2005Q3

REPORT INFORMATION
  Report Type: 
  Country: None (occurrence: None)
  Receive Date: 20050712
  Receipt Date: 20050712
  Transmission Date: 20060218
  Serious: Yes (Other)
  Sender: FDA-Public Use
  Company Number: None

PATIENT
  Sex: Male
  Weight: 77.1115 kg

DRUGS (2)
  1. TRAMIDOL PF [Suspect]
     Dates: start: 20050711, end: 20050711
  2. ULTRACET [Concomitant]

REACTIONS (3)
  - ASTHENIA [None]
  - HALLUCINATION [None]
  - SOMNOLENCE [None]
